FAERS Safety Report 12426953 (Version 1)
Quarter: 2016Q2

REPORT INFORMATION
  Report Type: Spontaneous
  Country: US (occurrence: US)
  Receive Date: 20160601
  Receipt Date: 20160601
  Transmission Date: 20160815
  Serious: No
  Sender: FDA-Public Use
  Company Number: GXBR2016US000917

PATIENT
  Sex: Female
  Weight: 40.82 kg

DRUGS (2)
  1. TACROLIMUS. [Suspect]
     Active Substance: TACROLIMUS
     Indication: ECZEMA
     Dosage: UNK DF, BID
     Route: 061
     Dates: start: 20150907, end: 20151007
  2. TACROLIMUS. [Suspect]
     Active Substance: TACROLIMUS
     Dosage: UNK DF, BID
     Route: 061
     Dates: start: 20151225, end: 20160125

REACTIONS (7)
  - Hypersensitivity [Recovering/Resolving]
  - Application site inflammation [Recovering/Resolving]
  - Application site erythema [Recovering/Resolving]
  - Eye irritation [Recovering/Resolving]
  - Application site fissure [Recovering/Resolving]
  - Drug ineffective [Not Recovered/Not Resolved]
  - Eczema [Recovering/Resolving]
